FAERS Safety Report 6565138-1 (Version None)
Quarter: 2010Q1

REPORT INFORMATION
  Report Type: 
  Country: None (occurrence: None)
  Receive Date: 20100201
  Receipt Date: 20100125
  Transmission Date: 20100710
  Serious: Yes (Hospitalization)
  Sender: FDA-Public Use
  Company Number: B0585391A

PATIENT
  Sex: Male
  Weight: 27.7 kg

DRUGS (2)
  1. AUGMENTIN '125' [Suspect]
     Indication: DRUG USE FOR UNKNOWN INDICATION
     Dosage: 1G THREE TIMES PER DAY
     Route: 042
     Dates: start: 20090627, end: 20090629
  2. DAKTARIN [Concomitant]
     Route: 061
     Dates: start: 20090627

REACTIONS (3)
  - LYMPHANGITIS [None]
  - PRODUCT QUALITY ISSUE [None]
  - VENIPUNCTURE SITE INFLAMMATION [None]
